FAERS Safety Report 14321290 (Version 3)
Quarter: 2018Q1

REPORT INFORMATION
  Report Type: Spontaneous
  Country: DE (occurrence: DE)
  Receive Date: 20171223
  Receipt Date: 20180223
  Transmission Date: 20180509
  Serious: Yes (Life-Threatening, Hospitalization)
  Sender: FDA-Public Use
  Company Number: PHHY2017DE187788

PATIENT
  Age: 65 Year
  Sex: Male
  Weight: 79.5 kg

DRUGS (16)
  1. NORVASC [Concomitant]
     Active Substance: AMLODIPINE BESYLATE
     Indication: PROPHYLAXIS
     Dosage: 5 MG, QD
     Route: 048
     Dates: start: 20170425
  2. SYMBICORT [Concomitant]
     Active Substance: BUDESONIDE\FORMOTEROL FUMARATE DIHYDRATE
     Indication: PRE-EXISTING DISEASE
     Dosage: 4.5 MG, QD
     Route: 055
  3. DOCETAXEL. [Suspect]
     Active Substance: DOCETAXEL
     Indication: LUNG ADENOCARCINOMA
     Dosage: 150 MG/M2, BSA (BODY SURFACE AREA)
     Route: 042
  4. VARGATEF [Suspect]
     Active Substance: NINTEDANIB
     Dosage: 400 MG, QD
     Route: 048
     Dates: end: 20170620
  5. AQUAPHOR [Concomitant]
     Active Substance: PETROLATUM
     Indication: PRE-EXISTING DISEASE
     Dosage: 10 MG, QD
     Route: 048
  6. ASS RATIOPHARM [Concomitant]
     Active Substance: ASPIRIN
     Indication: PRE-EXISTING DISEASE
     Dosage: 100 MG, QD
     Route: 048
     Dates: start: 20170414
  7. ALDACTONE [Concomitant]
     Active Substance: SPIRONOLACTONE
     Indication: PROPHYLAXIS
     Dosage: 25 MG, QD
     Route: 048
     Dates: start: 20161124
  8. NACL [Concomitant]
     Active Substance: SODIUM CHLORIDE
     Indication: PROPHYLAXIS
     Dosage: 1000 ML, QD
     Route: 042
     Dates: start: 20170428
  9. PANTOPRAZOL [Concomitant]
     Active Substance: PANTOPRAZOLE SODIUM
     Indication: PROPHYLAXIS
     Dosage: UNK
     Route: 048
  10. PREDNISOLON [Concomitant]
     Active Substance: PREDNISOLONE
     Indication: PRE-EXISTING DISEASE
     Dosage: 15 MG, QD
     Route: 048
  11. LEVOTHYROXINENATRIUM TEVA [Concomitant]
     Indication: PRE-EXISTING DISEASE
     Dosage: 0.05 MG, QD
     Route: 048
  12. LOESNESIUM [Concomitant]
     Indication: PROPHYLAXIS
     Dosage: UNK
     Route: 048
  13. VARGATEF [Suspect]
     Active Substance: NINTEDANIB
     Indication: LUNG ADENOCARCINOMA
     Dosage: 400 MG, QD
     Route: 048
     Dates: start: 20170419, end: 20170424
  14. VARGATEF [Suspect]
     Active Substance: NINTEDANIB
     Dosage: 400 MG, QD
     Route: 048
     Dates: end: 20171006
  15. BRETARIS GENUAIR [Concomitant]
     Active Substance: ACLIDINIUM BROMIDE
     Indication: PRE-EXISTING DISEASE
     Dosage: 322 UG, QD
     Route: 055
  16. VARGATEF [Suspect]
     Active Substance: NINTEDANIB
     Dosage: 2 UNK, QD
     Route: 048
     Dates: end: 20180103

REACTIONS (18)
  - Febrile neutropenia [Recovered/Resolved]
  - White blood cell count decreased [Recovered/Resolved]
  - Weight decreased [Recovered/Resolved]
  - Constipation [Recovered/Resolved]
  - White blood cell count decreased [Recovered/Resolved]
  - Tumour pain [Unknown]
  - C-reactive protein increased [Recovered/Resolved]
  - Palmar-plantar erythrodysaesthesia syndrome [Not Recovered/Not Resolved]
  - Diarrhoea [Unknown]
  - Vision blurred [Not Recovered/Not Resolved]
  - C-reactive protein increased [Recovered/Resolved]
  - Decreased appetite [Recovered/Resolved]
  - Abdominal pain upper [Recovered/Resolved]
  - Bronchitis [Recovered/Resolved]
  - Hypokalaemia [Recovered/Resolved]
  - Stomatitis [Recovered/Resolved with Sequelae]
  - Nausea [Recovered/Resolved]
  - Hyponatraemia [Not Recovered/Not Resolved]

NARRATIVE: CASE EVENT DATE: 20170425
